FAERS Safety Report 4957041-5 (Version None)
Quarter: 2006Q1

REPORT INFORMATION
  Report Type: 
  Country: None (occurrence: None)
  Receive Date: 20060323
  Receipt Date: 20060313
  Transmission Date: 20060701
  Serious: Yes (Hospitalization)
  Sender: FDA-Public Use
  Company Number: 13706

PATIENT
  Age: 52 Year
  Sex: Male
  Weight: 77.1 kg

DRUGS (6)
  1. CYTARABINE [Suspect]
     Indication: ACUTE MYELOID LEUKAEMIA
     Dosage: 2.8 G BID IV
     Route: 042
     Dates: start: 20060126, end: 20060130
  2. TYLENOL (CAPLET) [Concomitant]
  3. BENADRYL [Concomitant]
  4. COMPAZINE [Concomitant]
  5. NEXIUM [Concomitant]
  6. CLARITIN-D [Concomitant]

REACTIONS (3)
  - FEBRILE NEUTROPENIA [None]
  - NAUSEA [None]
  - VOMITING [None]
